FAERS Safety Report 25474347 (Version 1)
Quarter: 2025Q2

REPORT INFORMATION
  Report Type: Spontaneous
  Country: US (occurrence: US)
  Receive Date: 20250624
  Receipt Date: 20250624
  Transmission Date: 20250717
  Serious: No
  Sender: KRAMER LABORATORIES
  Company Number: US-KRAMERLABS-2025-US-001925

PATIENT
  Sex: Female

DRUGS (1)
  1. NIZORAL A-D [Suspect]
     Active Substance: KETOCONAZOLE
     Indication: Product use in unapproved indication
     Route: 061

REACTIONS (3)
  - Skin odour abnormal [Recovered/Resolved]
  - Suspected counterfeit product [Recovered/Resolved]
  - Product odour abnormal [Recovered/Resolved]
